FAERS Safety Report 16356357 (Version 4)
Quarter: 2020Q3

REPORT INFORMATION
  Report Type: Spontaneous
  Country: JP (occurrence: JP)
  Receive Date: 20190527
  Receipt Date: 20200907
  Transmission Date: 20201102
  Serious: Yes (Hospitalization)
  Sender: FDA-Public Use
  Company Number: JP-ABBVIE-19K-087-2736870-00

PATIENT
  Age: 55 Year
  Sex: Male
  Weight: 47.3 kg

DRUGS (15)
  1. BETAMETHASONE. [Concomitant]
     Active Substance: BETAMETHASONE
     Indication: PROCTITIS
     Dates: start: 20190227, end: 20190307
  2. HUMIRA [Suspect]
     Active Substance: ADALIMUMAB
     Indication: COLECTOMY
     Route: 058
     Dates: start: 20190327, end: 20190327
  3. HUMAN SERUM ALBUMIN [Concomitant]
     Active Substance: ALBUMIN HUMAN
     Route: 042
     Dates: start: 20190326, end: 20190331
  4. POLYCARBOPHIL CALCIUM [Concomitant]
     Active Substance: CALCIUM POLYCARBOPHIL
     Indication: ABNORMAL FAECES
     Route: 048
     Dates: start: 20190227
  5. HUMIRA [Suspect]
     Active Substance: ADALIMUMAB
     Indication: COLITIS ULCERATIVE
     Route: 058
     Dates: start: 20190227, end: 20190227
  6. HUMIRA [Suspect]
     Active Substance: ADALIMUMAB
     Indication: ENTERITIS
     Route: 058
     Dates: start: 20190313, end: 20190313
  7. LOPERAMIDE HYDROCHLORIDE. [Concomitant]
     Active Substance: LOPERAMIDE HYDROCHLORIDE
     Indication: ABNORMAL FAECES
     Route: 048
     Dates: start: 20190227
  8. CLOSTRIDIUM BUTYRICUM [Concomitant]
     Active Substance: CLOSTRIDIUM BUTYRICUM SPORES STRAIN M-55
     Indication: ABNORMAL FAECES
     Route: 048
     Dates: start: 20190227
  9. HUMAN SERUM ALBUMIN [Concomitant]
     Active Substance: ALBUMIN HUMAN
     Indication: BLOOD OSMOLARITY ABNORMAL
     Route: 042
     Dates: start: 20190312, end: 20190317
  10. NATURAL ALUMINIUM SILICATE [Concomitant]
     Indication: ABNORMAL FAECES
     Route: 048
     Dates: start: 20190227
  11. ESZOPICLONE. [Concomitant]
     Active Substance: ESZOPICLONE
     Indication: INSOMNIA
     Route: 048
     Dates: start: 20190227
  12. RAMELTEON [Concomitant]
     Active Substance: RAMELTEON
     Indication: INSOMNIA
     Route: 048
     Dates: start: 20190227
  13. LANSOPRAZOLE. [Concomitant]
     Active Substance: LANSOPRAZOLE
     Indication: GASTROOESOPHAGEAL REFLUX DISEASE
     Route: 048
     Dates: start: 20190227
  14. MESALAZINE [Concomitant]
     Active Substance: MESALAMINE
     Indication: PROCTITIS
     Dates: start: 20190308
  15. ALBUMIN TANNATE [Concomitant]
     Active Substance: ALBUMIN BOVINE\TANNIC ACID
     Indication: ABNORMAL FAECES
     Dates: start: 20190227

REACTIONS (14)
  - White blood cell count increased [Unknown]
  - Alanine aminotransferase decreased [Unknown]
  - Cardiac dysfunction [Recovered/Resolved]
  - Painful respiration [Recovering/Resolving]
  - Platelet count increased [Unknown]
  - Ventricular tachycardia [Recovered/Resolved]
  - Enteritis [Unknown]
  - Cardiomyopathy [Recovered/Resolved]
  - Pleural effusion [Unknown]
  - Haematocrit decreased [Unknown]
  - C-reactive protein increased [Unknown]
  - Haemoglobin decreased [Unknown]
  - Cardiac failure congestive [Recovering/Resolving]
  - Blood lactate dehydrogenase increased [Unknown]

NARRATIVE: CASE EVENT DATE: 201904
